FAERS Safety Report 6665628-7 (Version None)
Quarter: 2010Q1

REPORT INFORMATION
  Report Type: 
  Country: None (occurrence: None)
  Receive Date: 20100325
  Receipt Date: 20100118
  Transmission Date: 20100710
  Serious: No
  Sender: FDA-Public Use
  Company Number: 2010-00060

PATIENT
  Age: 62 Year
  Sex: Female
  Weight: 65.318 kg

DRUGS (1)
  1. ZICAM INTENSE SINUS RELIEF NASAL GEL [Suspect]
     Dosage: ONE DOSE, ONE DOSE
     Dates: start: 20100117, end: 20100117

REACTIONS (2)
  - AGEUSIA [None]
  - ANOSMIA [None]
